FAERS Safety Report 8094112-1 (Version None)
Quarter: 2012Q1

REPORT INFORMATION
  Report Type: 
  Country: None (occurrence: None)
  Receive Date: 20120131
  Receipt Date: 20120120
  Transmission Date: 20120608
  Serious: Yes (Other)
  Sender: FDA-Public Use
  Company Number: US-BRISTOL-MYERS SQUIBB COMPANY-16360505

PATIENT
  Age: 53 Year
  Sex: Male

DRUGS (1)
  1. KOMBIGLYZE XR [Suspect]
     Indication: DIABETES MELLITUS
     Dosage: 1DF=2.5MG/1000MG

REACTIONS (3)
  - LOSS OF EMPLOYMENT [None]
  - ACCIDENT [None]
  - LIMB INJURY [None]
